FAERS Safety Report 8450243-5 (Version None)
Quarter: 2012Q2

REPORT INFORMATION
  Report Type: 
  Country: None (occurrence: None)
  Receive Date: 20120620
  Receipt Date: 20120330
  Transmission Date: 20120825
  Serious: Yes (Life-Threatening, Hospitalization)
  Sender: FDA-Public Use
  Company Number: JP-CELGENEUS-087-50794-12040729

PATIENT
  Age: 58 Year
  Sex: Male
  Weight: 60 kg

DRUGS (35)
  1. SLOW-K [Concomitant]
     Route: 065
     Dates: start: 20110706, end: 20110711
  2. LASIX [Concomitant]
     Route: 065
     Dates: start: 20110720
  3. VANCOMYCIN [Concomitant]
     Route: 065
     Dates: start: 20110626, end: 20110725
  4. POTASSIUM CHLORIDE [Concomitant]
     Route: 065
     Dates: start: 20110621, end: 20110622
  5. MEROPENEM [Concomitant]
     Route: 065
     Dates: start: 20110727, end: 20110815
  6. CONIEL [Concomitant]
     Route: 065
     Dates: start: 20110722
  7. FUNGUARD [Concomitant]
     Route: 065
     Dates: start: 20110804, end: 20110822
  8. PREDNISOLONE [Concomitant]
     Route: 065
     Dates: start: 20110805, end: 20110808
  9. FUROSEMIDE [Concomitant]
     Route: 065
  10. VIDAZA [Suspect]
     Dosage: 50 MILLIGRAM
     Route: 065
     Dates: start: 20110719, end: 20110722
  11. PROMACTA [Concomitant]
     Route: 065
  12. MAXIPIME [Concomitant]
     Route: 065
     Dates: start: 20110618, end: 20110723
  13. ZOSYN [Concomitant]
     Route: 065
     Dates: start: 20110723, end: 20110723
  14. VENOGLOBULIN [Concomitant]
     Route: 065
     Dates: start: 20110628, end: 20110630
  15. NEOMALLERMIN TR [Concomitant]
     Route: 065
     Dates: start: 20110623, end: 20110702
  16. PREDNISOLONE [Concomitant]
     Route: 065
     Dates: start: 20110813, end: 20110816
  17. HANP [Concomitant]
     Route: 065
     Dates: start: 20110727, end: 20110727
  18. CATABON [Concomitant]
     Route: 065
     Dates: start: 20110725, end: 20110730
  19. LANSOPRAZOLE [Concomitant]
     Route: 065
  20. ITRACONAZOLE [Concomitant]
     Route: 065
  21. ARASENA A [Concomitant]
     Route: 065
     Dates: start: 20110615, end: 20110615
  22. SOLU-CORTEF [Concomitant]
     Route: 065
     Dates: start: 20110802, end: 20110804
  23. PREDNISOLONE [Concomitant]
     Route: 065
     Dates: start: 20110809, end: 20110812
  24. KYTRIL [Concomitant]
     Route: 065
     Dates: start: 20110617, end: 20110621
  25. ACETAMINOPHEN [Concomitant]
     Route: 065
     Dates: start: 20110626, end: 20110711
  26. DOPAMINE HCL [Concomitant]
     Route: 065
     Dates: start: 20110725, end: 20110730
  27. VIDAZA [Suspect]
     Dosage: 75 MILLIGRAM/SQ. METER
     Route: 041
     Dates: start: 20110613, end: 20110621
  28. KYTRIL [Concomitant]
     Route: 065
     Dates: start: 20110719, end: 20110722
  29. VALTREX [Concomitant]
     Route: 065
     Dates: start: 20110620, end: 20110626
  30. SLOW-K [Concomitant]
     Route: 065
     Dates: start: 20110622, end: 20110626
  31. MAGNESIUM OXIDE [Concomitant]
     Route: 065
     Dates: start: 20110705, end: 20110711
  32. PREDNISOLONE [Concomitant]
     Route: 065
     Dates: start: 20110817, end: 20110820
  33. PREDNISOLONE [Concomitant]
     Route: 065
     Dates: start: 20110821, end: 20110824
  34. HICALIQ RF [Concomitant]
     Route: 041
     Dates: start: 20110726, end: 20110815
  35. ETOPOSIDE [Concomitant]
     Route: 065
     Dates: start: 20110804, end: 20110806

REACTIONS (10)
  - ORAL HERPES [None]
  - NAUSEA [None]
  - OSTEOMYELITIS [None]
  - PYREXIA [None]
  - RASH [None]
  - INJECTION SITE PHLEBITIS [None]
  - OEDEMA [None]
  - RENAL FAILURE ACUTE [None]
  - HYPOKALAEMIA [None]
  - PALPITATIONS [None]
